FAERS Safety Report 6736987-1 (Version None)
Quarter: 2010Q2

REPORT INFORMATION
  Report Type: 
  Country: None (occurrence: None)
  Receive Date: 20100523
  Receipt Date: 20100324
  Transmission Date: 20101027
  Serious: No
  Sender: FDA-Public Use
  Company Number: US-ALLERGAN-1003842US

PATIENT
  Age: 87 Year
  Sex: Female

DRUGS (5)
  1. COMBIGAN [Suspect]
     Indication: GLAUCOMA
     Dosage: 1 GTT, BID
     Dates: start: 20100201
  2. XALATAN [Concomitant]
     Indication: GLAUCOMA
     Dosage: UNK GTT, BID
  3. ERYTHROMYCIN [Concomitant]
  4. SINGULAIR [Concomitant]
     Indication: ALLERGIC COUGH
  5. CLARITIN [Concomitant]

REACTIONS (3)
  - DRY SKIN [None]
  - ERYTHEMA OF EYELID [None]
  - EYELIDS PRURITUS [None]
